FAERS Safety Report 9229645 (Version 1)
Quarter: 2013Q2

REPORT INFORMATION
  Report Type: Spontaneous
  Country: RO (occurrence: RO)
  Receive Date: 20130415
  Receipt Date: 20130415
  Transmission Date: 20140414
  Serious: Yes (Hospitalization)
  Sender: FDA-Public Use
  Company Number: PHHY2013RO033049

PATIENT
  Age: 30 Year
  Sex: Male

DRUGS (4)
  1. CARBAMAZEPINE [Suspect]
  2. CARBAMAZEPINE [Suspect]
     Dosage: 2000 MG, UNK
  3. IBUPROFEN [Suspect]
  4. IBUPROFEN [Suspect]
     Dosage: 10 TABLETS, UNK

REACTIONS (4)
  - Suicidal behaviour [Recovering/Resolving]
  - Somnolence [Recovering/Resolving]
  - Psychomotor retardation [Recovering/Resolving]
  - Communication disorder [Recovering/Resolving]
